FAERS Safety Report 9969578 (Version 2)
Quarter: 2014Q2

REPORT INFORMATION
  Report Type: Spontaneous
  Country: US (occurrence: US)
  Receive Date: 20140306
  Receipt Date: 20140408
  Transmission Date: 20141212
  Serious: No
  Sender: FDA-Public Use
  Company Number: US-B.I. PHARMACEUTICALS,INC./RIDGEFIELD-2014-BI-08125BP

PATIENT
  Age: 80 Year
  Sex: Male

DRUGS (8)
  1. SPIRIVA [Suspect]
     Indication: CHRONIC OBSTRUCTIVE PULMONARY DISEASE
     Dosage: 18 MCG
     Route: 055
     Dates: start: 201401
  2. HYDROCHLOROTHIAZIDE [Concomitant]
     Dosage: 12.5 MG
     Route: 048
  3. AVADART [Concomitant]
     Route: 048
  4. TAMSULOSIN [Concomitant]
     Indication: PROSTATOMEGALY
     Dosage: 0.8 NR
     Route: 048
  5. NEURONTIN [Concomitant]
     Indication: PAIN IN EXTREMITY
     Dosage: 1600 MG
     Route: 048
  6. LISINOPRIL [Concomitant]
     Indication: HYPERTENSION
     Dosage: 80 MG
     Route: 048
  7. NORVASC [Concomitant]
     Dosage: 20 MG
     Route: 048
  8. DOXAZOSIN [Concomitant]
     Dosage: 16 MG
     Route: 048

REACTIONS (5)
  - Dyspnoea [Recovered/Resolved]
  - Aphonia [Not Recovered/Not Resolved]
  - Product quality issue [Recovered/Resolved]
  - Product quality issue [Recovered/Resolved]
  - Product quality issue [Recovered/Resolved]
